FAERS Safety Report 21854599 (Version 1)
Quarter: 2023Q1

REPORT INFORMATION
  Report Type: Spontaneous
  Country: US (occurrence: None)
  Receive Date: 20230112
  Receipt Date: 20230112
  Transmission Date: 20230418
  Serious: Yes (Death, Hospitalization)
  Sender: FDA-Public Use
  Company Number: None

PATIENT
  Sex: Female
  Weight: 84.2 kg

DRUGS (5)
  1. PACLITAXEL [Suspect]
     Active Substance: PACLITAXEL
     Dates: end: 20210317
  2. PACLITAXEL [Suspect]
     Active Substance: PACLITAXEL
     Dates: end: 20210414
  3. PERTUZUMAB [Suspect]
     Active Substance: PERTUZUMAB
     Dates: end: 20210721
  4. TRASTUZUMAB [Suspect]
     Active Substance: TRASTUZUMAB
     Dates: end: 20210721
  5. TRASTUZUMAB [Suspect]
     Active Substance: TRASTUZUMAB

REACTIONS (25)
  - Pain [None]
  - Asthenia [None]
  - Diarrhoea [None]
  - Myalgia [None]
  - Dehydration [None]
  - Tachycardia [None]
  - Orthostatic hypotension [None]
  - White blood cell count increased [None]
  - Neutrophil count increased [None]
  - Blood glucose increased [None]
  - Aspartate aminotransferase increased [None]
  - Alanine aminotransferase increased [None]
  - Erythema [None]
  - Skin exfoliation [None]
  - Infection [None]
  - Pneumonia [None]
  - Rales [None]
  - Tachypnoea [None]
  - Lung opacity [None]
  - COVID-19 pneumonia [None]
  - Pulmonary oedema [None]
  - Dyspnoea [None]
  - Pulseless electrical activity [None]
  - Cardiac arrest [None]
  - COVID-19 [None]

NARRATIVE: CASE EVENT DATE: 20210731
